FAERS Safety Report 15644322 (Version 1)
Quarter: 2018Q4

REPORT INFORMATION
  Report Type: Spontaneous
  Country: FR (occurrence: FR)
  Receive Date: 20181121
  Receipt Date: 20181121
  Transmission Date: 20190205
  Serious: Yes (Hospitalization)
  Sender: FDA-Public Use
  Company Number: FR-ANIPHARMA-2018-FR-000183

PATIENT
  Age: 47 Year
  Sex: Female

DRUGS (3)
  1. LASILIX [Suspect]
     Active Substance: FUROSEMIDE
     Dosage: 1 DF UNK
     Route: 048
     Dates: start: 201807, end: 20180810
  2. CANDESARTAN CILEXETIL AND HYDROCHLOROTHIAZIDE [Suspect]
     Active Substance: CANDESARTAN CILEXETIL\HYDROCHLOROTHIAZIDE
     Indication: HYPERTENSION
     Dosage: 8/12.5 MG 1 DF UNKNOWN
     Route: 048
     Dates: start: 201807, end: 20180810
  3. ALLOPURINOL. [Suspect]
     Active Substance: ALLOPURINOL
     Dosage: 1 DF UNK
     Route: 048
     Dates: start: 201807, end: 20180810

REACTIONS (1)
  - Drug reaction with eosinophilia and systemic symptoms [Recovered/Resolved]

NARRATIVE: CASE EVENT DATE: 201808
